FAERS Safety Report 13214863 (Version 1)
Quarter: 2017Q1

REPORT INFORMATION
  Report Type: Report from Study
  Country: US (occurrence: US)
  Receive Date: 20170210
  Receipt Date: 20170210
  Transmission Date: 20170428
  Serious: Yes (Death)
  Sender: FDA-Public Use
  Company Number: US-PFIZER INC-2017057470

PATIENT

DRUGS (4)
  1. METHOTREXATE SODIUM. [Suspect]
     Active Substance: METHOTREXATE SODIUM
     Indication: T-CELL LYMPHOMA
     Dosage: 3000MG/ M ; CIV 6-HOUR, D1, CYCLIC
     Route: 042
  2. DEXAMETHASONE. [Suspect]
     Active Substance: DEXAMETHASONE
     Indication: T-CELL LYMPHOMA
     Dosage: 40MG/D, D1-4, CYCLIC
     Route: 041
  3. PEGASPARGASE [Suspect]
     Active Substance: PEGASPARGASE
     Indication: T-CELL LYMPHOMA
     Dosage: 2000U/M, D1, CYCLIC
     Route: 030
  4. CALCIUM FOLINATE [Suspect]
     Active Substance: LEUCOVORIN CALCIUM
     Indication: T-CELL LYMPHOMA
     Dosage: 30 MG IV, Q6H, UNTIL REACH SAFE SERUM MTX CONCENTRATION
     Route: 042

REACTIONS (1)
  - Sepsis [Fatal]
